FAERS Safety Report 7394597-X (Version None)
Quarter: 2011Q2

REPORT INFORMATION
  Report Type: 
  Country: None (occurrence: None)
  Receive Date: 20110405
  Receipt Date: 20110330
  Transmission Date: 20111010
  Serious: Yes (Hospitalization, Other)
  Sender: FDA-Public Use
  Company Number: US-PFIZER INC-2010113286

PATIENT
  Age: 43 Year
  Sex: Female
  Weight: 40.816 kg

DRUGS (4)
  1. KLONOPIN [Concomitant]
     Dosage: UNK
  2. ZOLOFT [Suspect]
     Indication: DEPRESSION
     Dosage: UNK
  3. ROBITUSSIN CHILDREN'S COUGH AND COLD LONG ACTING [Suspect]
     Dosage: 30 ML, SINGLE
     Route: 048
     Dates: start: 20100728, end: 20100728
  4. BENADRYL [Suspect]
     Dosage: THREE 25 MG TABS

REACTIONS (9)
  - ABASIA [None]
  - DYSURIA [None]
  - ABNORMAL BEHAVIOUR [None]
  - MOTOR DYSFUNCTION [None]
  - CHROMATURIA [None]
  - METAMORPHOPSIA [None]
  - POLLAKIURIA [None]
  - URINARY BLADDER HAEMORRHAGE [None]
  - URINARY RETENTION [None]
